FAERS Safety Report 9363022 (Version 1)
Quarter: 2013Q2

REPORT INFORMATION
  Report Type: Report from Study
  Country: AU (occurrence: AU)
  Receive Date: 20130624
  Receipt Date: 20130624
  Transmission Date: 20140414
  Serious: Yes (Other)
  Sender: FDA-Public Use
  Company Number: AU-ROCHE-1239776

PATIENT
  Age: 67 Year
  Sex: Female

DRUGS (1)
  1. RANIBIZUMAB [Suspect]
     Indication: AGE-RELATED MACULAR DEGENERATION
     Route: 050
     Dates: start: 201107

REACTIONS (8)
  - Mood altered [Unknown]
  - Headache [Recovered/Resolved]
  - Eye pain [Recovered/Resolved]
  - Vitreous floaters [Unknown]
  - Eye haemorrhage [Unknown]
  - Sinus disorder [Recovered/Resolved]
  - Rhinorrhoea [Unknown]
  - Thyroid disorder [Unknown]
